FAERS Safety Report 7465159-0 (Version None)
Quarter: 2011Q2

REPORT INFORMATION
  Report Type: 
  Country: None (occurrence: None)
  Receive Date: 20110509
  Receipt Date: 20110505
  Transmission Date: 20111010
  Serious: Yes (Other)
  Sender: FDA-Public Use
  Company Number: GB-B.I. PHARMACEUTICALS,INC./RIDGEFIELD-2011-UK-00458UK

PATIENT
  Age: 62 Year
  Sex: Male
  Weight: 118 kg

DRUGS (11)
  1. ASPIRIN [Concomitant]
     Dates: start: 20110217
  2. PREDNISOLONE [Concomitant]
  3. SIMVASTATIN [Concomitant]
     Dates: start: 20110217
  4. DOXYCYCLINE [Concomitant]
  5. DILTIAZEM [Concomitant]
     Dates: start: 20110217
  6. ATROVENT [Suspect]
     Dates: start: 20110301
  7. OMEPRAZOLE [Concomitant]
     Dates: start: 20110217
  8. RAMIPRIL [Concomitant]
     Dates: start: 20110217
  9. ALBUTEROL SULFATE AUTOHALER [Concomitant]
     Dates: start: 20110217
  10. SALMETEROL [Concomitant]
  11. VENTOLIN [Concomitant]
     Dates: start: 20110215

REACTIONS (1)
  - ORAL CANDIDIASIS [None]
